FAERS Safety Report 12085776 (Version 1)
Quarter: 2016Q1

REPORT INFORMATION
  Report Type: Spontaneous
  Country: JP (occurrence: JP)
  Receive Date: 20160217
  Receipt Date: 20160217
  Transmission Date: 20160526
  Serious: Yes (Other)
  Sender: FDA-Public Use
  Company Number: JP-SA-2016SA028314

PATIENT
  Sex: Male
  Weight: 52 kg

DRUGS (11)
  1. IOHEXOL [Concomitant]
     Active Substance: IOHEXOL
  2. ELPLAT [Suspect]
     Active Substance: OXALIPLATIN
     Indication: COLON CANCER
     Route: 041
     Dates: start: 2013, end: 2013
  3. UROGRAFIN [Concomitant]
     Active Substance: DIATRIZOATE MEGLUMINE\DIATRIZOATE SODIUM
  4. 5-FU [Concomitant]
     Active Substance: FLUOROURACIL
     Dates: start: 2013
  5. POLIDOCANOL [Concomitant]
     Active Substance: POLIDOCANOL
  6. LEVOFOLINATE [Suspect]
     Active Substance: LEVOLEUCOVORIN CALCIUM
     Indication: COLON CANCER
     Route: 041
     Dates: start: 2013, end: 2013
  7. CAMPTO [Suspect]
     Active Substance: IRINOTECAN
     Indication: COLON CANCER
     Route: 041
     Dates: start: 201401
  8. LEVOFOLINATE [Suspect]
     Active Substance: LEVOLEUCOVORIN CALCIUM
     Indication: COLON CANCER
     Route: 041
  9. AVASTIN [Concomitant]
     Active Substance: BEVACIZUMAB
     Dates: start: 2013
  10. PROPRANOLOL HYDROCHLORIDE. [Concomitant]
     Active Substance: PROPRANOLOL HYDROCHLORIDE
  11. LEVOFOLINATE [Suspect]
     Active Substance: LEVOLEUCOVORIN CALCIUM
     Indication: COLON CANCER
     Route: 041
     Dates: start: 201401

REACTIONS (7)
  - Stoma site haemorrhage [Recovering/Resolving]
  - Varices oesophageal [Recovering/Resolving]
  - Hepatic enzyme increased [Recovering/Resolving]
  - Bleeding varicose vein [Recovering/Resolving]
  - Tumour lysis syndrome [Recovering/Resolving]
  - Anaemia [Recovering/Resolving]
  - Portal hypertension [Recovering/Resolving]

NARRATIVE: CASE EVENT DATE: 201402
